FAERS Safety Report 13646478 (Version 14)
Quarter: 2020Q4

REPORT INFORMATION
  Report Type: Spontaneous
  Country: US (occurrence: US)
  Receive Date: 20170613
  Receipt Date: 20201230
  Transmission Date: 20210113
  Serious: No
  Sender: FDA-Public Use
  Company Number: US-PFIZER INC-2016438754

PATIENT
  Age: 78 Year
  Sex: Male
  Weight: 86 kg

DRUGS (47)
  1. LYRICA [Suspect]
     Active Substance: PREGABALIN
     Dosage: 300 MG, UNK
     Route: 048
  2. MAGNESIUM [Concomitant]
     Active Substance: MAGNESIUM
     Dosage: 250 MG, DAILY
  3. TAMSULOSIN HCL [Concomitant]
     Active Substance: TAMSULOSIN HYDROCHLORIDE
     Dosage: 50 MG, DAILY (AT BEDTIME
     Route: 048
  4. ZANTAC [Concomitant]
     Active Substance: RANITIDINE HYDROCHLORIDE
     Dosage: 150 MG, IN THE MORNING AND EVERY NIGHT AT BEDTIME
     Route: 048
  5. LISINOPRIL. [Concomitant]
     Active Substance: LISINOPRIL
     Dosage: 40 MG, 1X/DAY
     Route: 048
  6. TYLENOL [Concomitant]
     Active Substance: ACETAMINOPHEN
     Dosage: 325 MG, AS NEEDED
  7. PROAIR HFA [Concomitant]
     Active Substance: ALBUTEROL SULFATE
     Indication: WHEEZING
     Dosage: 90 BA, 2 PUFFS EVERY 4-6 HOURS AS NEEDED (STRENGTH: 108)
     Dates: start: 20161116
  8. TIZANIDINE HCL [Concomitant]
     Active Substance: TIZANIDINE HYDROCHLORIDE
     Dosage: 2 MG, 3X/DAY
     Route: 048
     Dates: start: 20161003
  9. NORVASC [Concomitant]
     Active Substance: AMLODIPINE BESYLATE
     Dosage: 10 MG, 1X/DAY (HOLD FOR NOW)
     Route: 048
  10. METOPROLOL. [Concomitant]
     Active Substance: METOPROLOL
     Dosage: 50 MG, DAILY
  11. ZYRTEC [Concomitant]
     Active Substance: CETIRIZINE HYDROCHLORIDE
     Dosage: 10 MG, DAILY
  12. FENTANYL. [Concomitant]
     Active Substance: FENTANYL
     Indication: FIBROMYALGIA
     Dosage: 50 UG, (APPLY PATCH EVERY 72 HOURS; REMEMBER TO REMOVE OLD PATCH)
  13. FENTANYL. [Concomitant]
     Active Substance: FENTANYL
     Dosage: 50 MG, APPLY PATCH EVERY 72 HOURS
  14. AMITRIPTYLINE HCL [Concomitant]
     Active Substance: AMITRIPTYLINE
     Dosage: 50 MG, DAILY (AT BEDTIME)
     Route: 048
  15. PAXIL [Concomitant]
     Active Substance: PAROXETINE HYDROCHLORIDE
     Dosage: 20 MG, EVERY EVENING
     Route: 048
  16. PAXIL [Concomitant]
     Active Substance: PAROXETINE HYDROCHLORIDE
     Dosage: 40 MG, EVERY MORNING
     Route: 048
  17. VITAMIN C [Concomitant]
     Active Substance: ASCORBIC ACID
     Dosage: 1000 MG, 1X/DAY (EVERYDAY)
     Route: 048
  18. ASPERCREME NOS [Concomitant]
     Active Substance: MENTHOL\TROLAMINE SALICYLATE
     Dosage: ON LEGS/FEET, AS NEEDED
     Route: 061
  19. LYRICA [Suspect]
     Active Substance: PREGABALIN
     Indication: FIBROMYALGIA
     Dosage: 200 MG, 3X/DAY (EVERY 8 HOURS)
     Route: 048
  20. CYCLOBENZAPRINE HCL [Concomitant]
     Active Substance: CYCLOBENZAPRINE HYDROCHLORIDE
     Dosage: UNK, AS NEEDED (1/2 TO 1 EVERY 8 HOURS, AS NEEDED)
     Route: 048
  21. PROVENTIL HFA [Concomitant]
     Active Substance: ALBUTEROL SULFATE
     Dosage: 2 PUFF, EVERY 4 HOURS, AS NEEDED
  22. ASPIRIN ENTERIC COATED [Concomitant]
     Active Substance: ASPIRIN
     Dosage: 162 MG, 1X/DAY (81 MG, 2 EVERYDAY)
  23. NEXIUM [Concomitant]
     Active Substance: ESOMEPRAZOLE MAGNESIUM
     Indication: GASTRIC DISORDER
     Dosage: 40 MG, 1X/DAY (IN THE MORNING)
     Route: 048
  24. LYRICA [Suspect]
     Active Substance: PREGABALIN
     Indication: NEURALGIA
     Dosage: 300 MG, 3X/DAY (EVERY 8 HOURS)
     Route: 048
     Dates: start: 201705
  25. TEMAZEPAM. [Concomitant]
     Active Substance: TEMAZEPAM
     Dosage: 15 MG, 1X/DAY (30 MINUTES PRIOR TO BEDTIME)
     Route: 048
  26. TOPROL XL [Concomitant]
     Active Substance: METOPROLOL SUCCINATE
     Dosage: 50 MG, 1X/DAY (EVERYDAY)
     Route: 048
  27. AMLODIPINE [Concomitant]
     Active Substance: AMLODIPINE BESYLATE
     Dosage: 10 MG, DAILY
  28. PAROXETINE. [Concomitant]
     Active Substance: PAROXETINE
     Dosage: 20 MG, 1X/DAY (PM)
  29. LYRICA [Suspect]
     Active Substance: PREGABALIN
     Indication: NEURITIS
     Dosage: 200 MG, UNK
     Route: 048
     Dates: start: 201706
  30. LYRICA [Suspect]
     Active Substance: PREGABALIN
     Dosage: 200 MG, 2X/DAY
     Route: 048
  31. ALLOPURINOL. [Concomitant]
     Active Substance: ALLOPURINOL
     Dosage: 200 MG, DAILY
     Route: 048
  32. METFORMIN HCL [Concomitant]
     Active Substance: METFORMIN HYDROCHLORIDE
     Indication: DIABETES MELLITUS
     Dosage: 500 MG, TWICE A DAY
     Route: 048
  33. LIDODERM [Concomitant]
     Active Substance: LIDOCAINE
     Dosage: 5 %, 1 PATCH TO AFFECTED AREA EVERYDAY, 12 HOURS ON AND 12 HOURS OFF AS NEEDED
  34. UNISOM SLEEP [Concomitant]
     Active Substance: DOXYLAMINE SUCCINATE
     Indication: SLEEP DISORDER
     Dosage: 50 MG, AS NEEDED
  35. STOOL SOFTENER (DOCUSATE) [Concomitant]
     Active Substance: DOCUSATE
     Dosage: 100 MG, 1X/DAY
  36. STOOL SOFTENER (DOCUSATE) [Concomitant]
     Active Substance: DOCUSATE
     Dosage: 200 MG, 1X/DAY
  37. LYRICA [Suspect]
     Active Substance: PREGABALIN
     Dosage: 300 MG, 3X/DAY (EVERY 8 HOURS)
     Route: 048
  38. MAGNESIUM [Concomitant]
     Active Substance: MAGNESIUM
     Indication: BLOOD MAGNESIUM DECREASED
     Dosage: 400 MG, 2 EVERYDAY
     Route: 048
  39. FLONASE [Concomitant]
     Active Substance: FLUTICASONE PROPIONATE
     Dosage: 4 DF, 1X/DAY (2 SPRAY EACH NOSTRIL EVERYDAY)
     Route: 045
  40. UNISOM PM PAIN [Concomitant]
     Indication: PAIN
     Dosage: 50 MG, 1X/DAY (AT BEDTIME)
  41. ALPRAZOLAM. [Concomitant]
     Active Substance: ALPRAZOLAM
     Dosage: 0.5 MG, 2X/DAY
  42. PAROXETINE. [Concomitant]
     Active Substance: PAROXETINE
     Dosage: 40 MG, 1X/DAY (AT DAY AM)
  43. VIAGRA [Concomitant]
     Active Substance: SILDENAFIL CITRATE
     Dosage: 100 MG, UNK (ONE 30 MINUTES PRIOR TO INTERCOURSE)
     Route: 048
  44. ALLOPURINOL. [Concomitant]
     Active Substance: ALLOPURINOL
     Dosage: 100 MG, EVERYDAY, MAY NEED TO INCREASE TO 2 DAILY AFTER 3 DAYS
     Route: 048
  45. XANAX [Concomitant]
     Active Substance: ALPRAZOLAM
     Dosage: 1/2-1 TABLET, BID (TWICE A DAY) NO MORE THAN TWO A DAY
     Route: 048
  46. OXYCODONE HYDROCHLORIDE. [Concomitant]
     Active Substance: OXYCODONE HYDROCHLORIDE
     Indication: PAIN
     Dosage: ONE TO TWO TABLETS, EVERY 12 HOURS AS NEEDED
  47. ALBUTEROL SULFATE. [Concomitant]
     Active Substance: ALBUTEROL SULFATE
     Dosage: 2 DF, EVERY 4 HOURS
     Route: 055

REACTIONS (10)
  - Product dose omission issue [Unknown]
  - Feeling abnormal [Not Recovered/Not Resolved]
  - Malaise [Unknown]
  - Hyperhidrosis [Unknown]
  - Withdrawal syndrome [Unknown]
  - Pain [Unknown]
  - Discomfort [Unknown]
  - Intentional product misuse [Unknown]
  - Prescribed overdose [Unknown]
  - Fall [Unknown]

NARRATIVE: CASE EVENT DATE: 201705
